FAERS Safety Report 4848225-5 (Version None)
Quarter: 2005Q4

REPORT INFORMATION
  Report Type: 
  Country: None (occurrence: None)
  Receive Date: 20051206
  Receipt Date: 20051115
  Transmission Date: 20060501
  Serious: Yes (Other)
  Sender: FDA-Public Use
  Company Number: US200511000923

PATIENT
  Age: 80 Year
  Sex: Female

DRUGS (3)
  1. HUMALOG [Suspect]
     Dosage: UNK, AS NEEDED, UNK
  2. HUMULIN 70/30 [Suspect]
     Dosage: 17 UNITS IN THE MORNING, 12 UNITS AT NIGHT, UNK, 12 U, EACH EVENING
     Dates: start: 20051004
  3. HUMULIN N [Suspect]
     Indication: DIABETES MELLITUS

REACTIONS (7)
  - ANKLE FRACTURE [None]
  - BLOOD GLUCOSE FLUCTUATION [None]
  - DIABETES MELLITUS INADEQUATE CONTROL [None]
  - LOSS OF CONSCIOUSNESS [None]
  - PHARMACEUTICAL PRODUCT COMPLAINT [None]
  - RETINAL DISORDER [None]
  - VISUAL ACUITY REDUCED [None]
